FAERS Safety Report 22625714 (Version 1)
Quarter: 2023Q2

REPORT INFORMATION
  Report Type: Spontaneous
  Country: US (occurrence: None)
  Receive Date: 20230620
  Receipt Date: 20230620
  Transmission Date: 20230722
  Serious: Yes (Other)
  Sender: FDA-Public Use
  Company Number: None

PATIENT
  Sex: 0

DRUGS (1)
  1. PLENVU [Suspect]
     Active Substance: ASCORBIC ACID\POLYETHYLENE GLYCOL 3350\POTASSIUM CHLORIDE\SODIUM ASCORBATE\SODIUM CHLORIDE\SODIUM SU
     Indication: Bowel preparation
     Dates: start: 20230529, end: 20230530

REACTIONS (4)
  - Drug hypersensitivity [None]
  - Vomiting [None]
  - Post procedural complication [None]
  - Abdominal discomfort [None]

NARRATIVE: CASE EVENT DATE: 20230529
